FAERS Safety Report 7577152-8 (Version None)
Quarter: 2011Q2

REPORT INFORMATION
  Report Type: 
  Country: None (occurrence: None)
  Receive Date: 20110628
  Receipt Date: 20110616
  Transmission Date: 20111010
  Serious: Yes (Hospitalization, Disabling, Other)
  Sender: FDA-Public Use
  Company Number: US-BAYER-201033477NA

PATIENT
  Age: 51 Year
  Sex: Male

DRUGS (4)
  1. IBUPROFEN [Concomitant]
  2. BETASERON [Suspect]
     Indication: MULTIPLE SCLEROSIS
     Dosage: BETAJECT
     Route: 058
  3. BETASERON [Suspect]
     Route: 058
     Dates: start: 20100907
  4. BETASERON [Suspect]
     Dosage: 8 MIU, QOD
     Route: 058

REACTIONS (9)
  - MOVEMENT DISORDER [None]
  - MULTIPLE SCLEROSIS [None]
  - UPPER LIMB FRACTURE [None]
  - NAUSEA [None]
  - BACK PAIN [None]
  - FALL [None]
  - GAIT DISTURBANCE [None]
  - BALANCE DISORDER [None]
  - NECK PAIN [None]
